FAERS Safety Report 6676288-3 (Version None)
Quarter: 2010Q1

REPORT INFORMATION
  Report Type: 
  Country: None (occurrence: None)
  Receive Date: 20100331
  Receipt Date: 20090702
  Transmission Date: 20100710
  Serious: Yes (Other)
  Sender: FDA-Public Use
  Company Number: 2009215437

PATIENT

DRUGS (3)
  1. SUTENT [Suspect]
     Indication: METASTATIC RENAL CELL CARCINOMA
  2. ASPIRIN [Concomitant]
  3. PLAVIX [Concomitant]

REACTIONS (1)
  - HAEMATOCHEZIA [None]
